FAERS Safety Report 7777029-9 (Version None)
Quarter: 2011Q3

REPORT INFORMATION
  Report Type: 
  Country: None (occurrence: None)
  Receive Date: 20110926
  Receipt Date: 20110926
  Transmission Date: 20111222
  Serious: Yes (Life-Threatening)
  Sender: FDA-Public Use
  Company Number: None

PATIENT
  Age: 54 Year
  Sex: Female
  Weight: 88.904 kg

DRUGS (1)
  1. LYRICA [Suspect]
     Indication: MYALGIA
     Dosage: 1
     Route: 048
     Dates: start: 20110421, end: 20110606

REACTIONS (4)
  - EMOTIONAL DISORDER [None]
  - FEELING OF DESPAIR [None]
  - SOCIAL AVOIDANT BEHAVIOUR [None]
  - MORBID THOUGHTS [None]
